FAERS Safety Report 7524002-1 (Version None)
Quarter: 2011Q2

REPORT INFORMATION
  Report Type: 
  Country: None (occurrence: None)
  Receive Date: 20110604
  Receipt Date: 20110520
  Transmission Date: 20111010
  Serious: Yes (Hospitalization)
  Sender: FDA-Public Use
  Company Number: KR-WATSON-2011-06763

PATIENT
  Age: 54 Year
  Sex: Female

DRUGS (3)
  1. LIDOCAINE HYDROCHLORIDE [Suspect]
     Indication: PRODUCT USED FOR UNKNOWN INDICATION
  2. IOTROLAN [Suspect]
     Indication: PRODUCT USED FOR UNKNOWN INDICATION
  3. TRIAMCINOLONE [Suspect]
     Indication: PRODUCT USED FOR UNKNOWN INDICATION

REACTIONS (1)
  - POSTERIOR REVERSIBLE ENCEPHALOPATHY SYNDROME [None]
